FAERS Safety Report 13174680 (Version 2)
Quarter: 2018Q1

REPORT INFORMATION
  Report Type: Spontaneous
  Country: US (occurrence: US)
  Receive Date: 20170201
  Receipt Date: 20180126
  Transmission Date: 20180508
  Serious: No
  Sender: FDA-Public Use
  Company Number: US-ABBVIE-16K-802-1556283-00

PATIENT

DRUGS (1)
  1. HUMIRA [Suspect]
     Active Substance: ADALIMUMAB
     Indication: PRODUCT USED FOR UNKNOWN INDICATION
     Route: 058

REACTIONS (8)
  - Psoriatic arthropathy [Unknown]
  - Arthralgia [Unknown]
  - Mobility decreased [Unknown]
  - Quality of life decreased [Unknown]
  - Condition aggravated [Unknown]
  - Stress [Unknown]
  - Moaning [Unknown]
  - Loss of personal independence in daily activities [Unknown]
